FAERS Safety Report 18965064 (Version 1)
Quarter: 2021Q1

REPORT INFORMATION
  Report Type: Other
  Country: US (occurrence: US)
  Receive Date: 20210303
  Receipt Date: 20210303
  Transmission Date: 20210420
  Serious: Yes (Hospitalization, Other)
  Sender: FDA-Public Use
  Company Number: US-ROCHE-2774730

PATIENT
  Age: 46 Year
  Sex: Female
  Weight: 61.29 kg

DRUGS (1)
  1. OCREVUS [Suspect]
     Active Substance: OCRELIZUMAB
     Indication: SECONDARY PROGRESSIVE MULTIPLE SCLEROSIS
     Dosage: ON 17/DEC/2018, 07/JAN/2019, 15/JUL/2019, 20/JAN/2020 AND 20/JUL/2020, RECEIVED OCRELIZUMAB OF AN UN
     Route: 042

REACTIONS (8)
  - Neuralgia [Unknown]
  - Multiple sclerosis [Recovered/Resolved]
  - COVID-19 [Recovering/Resolving]
  - Thrombosis [Recovering/Resolving]
  - Pneumonia [Recovered/Resolved]
  - Asthenia [Recovered/Resolved]
  - Discomfort [Recovered/Resolved]
  - Cough [Recovering/Resolving]

NARRATIVE: CASE EVENT DATE: 202011
